FAERS Safety Report 9512940 (Version 1)
Quarter: 2013Q3

REPORT INFORMATION
  Report Type: Report from Study
  Country: NL (occurrence: NL)
  Receive Date: 20130910
  Receipt Date: 20130910
  Transmission Date: 20140515
  Serious: Yes (Death)
  Sender: FDA-Public Use
  Company Number: NL-ROCHE-1272806

PATIENT
  Sex: Male

DRUGS (16)
  1. MIRCERA [Suspect]
     Indication: NEPHROGENIC ANAEMIA
     Route: 058
     Dates: start: 20090319, end: 20130821
  2. ACENOCOUMAROL [Concomitant]
     Route: 048
  3. ALPHACALCIDOL [Concomitant]
     Route: 048
  4. BUMETANIDE [Concomitant]
     Route: 048
  5. FERROUS FUMARATE [Concomitant]
     Route: 048
  6. FOSINOPRIL [Concomitant]
     Route: 048
  7. LEVOCARB [Concomitant]
     Dosage: LEVODOPA/CARBIDOPA-100/25MG
     Route: 048
  8. MAGNESIUM HYDROXIDE [Concomitant]
     Route: 048
  9. METOPROLOL SUCCINATE [Concomitant]
     Route: 048
  10. OMEPRAZOLE [Concomitant]
     Route: 048
  11. PANTOPRAZOLE [Concomitant]
     Route: 048
  12. PARACETAMOL/CODEINE [Concomitant]
     Dosage: DOSE: 500/10MG
     Route: 048
  13. PRAVASTATIN [Concomitant]
     Route: 048
  14. PREDNISOLONE [Concomitant]
     Route: 048
  15. SULINDAC [Concomitant]
     Route: 048
  16. TAMSULOSINE [Concomitant]
     Route: 048

REACTIONS (1)
  - Death [Fatal]
